FAERS Safety Report 22366561 (Version 1)
Quarter: 2023Q2

REPORT INFORMATION
  Report Type: Report from Study
  Country: US (occurrence: US)
  Receive Date: 20230525
  Receipt Date: 20230525
  Transmission Date: 20230721
  Serious: Yes (Death, Other)
  Sender: FDA-Public Use
  Company Number: US-GILEAD-2023-0624363

PATIENT
  Sex: Female

DRUGS (5)
  1. AMBRISENTAN [Suspect]
     Active Substance: AMBRISENTAN
     Indication: Pulmonary hypertension
     Dosage: 5 MG, QD
     Route: 065
     Dates: start: 20201124
  2. AMBRISENTAN [Suspect]
     Active Substance: AMBRISENTAN
     Indication: Pulmonary arterial hypertension
  3. TREPROSTINIL [Concomitant]
     Active Substance: TREPROSTINIL
  4. OFEV [Concomitant]
     Active Substance: NINTEDANIB
  5. ADCIRCA [Concomitant]
     Active Substance: TADALAFIL
     Dosage: UNK

REACTIONS (6)
  - Death [Fatal]
  - Dyspnoea [Unknown]
  - Stress [Unknown]
  - Malaise [Unknown]
  - Productive cough [Not Recovered/Not Resolved]
  - Multiple allergies [Not Recovered/Not Resolved]
